FAERS Safety Report 8896376 (Version 1)
Quarter: 2012Q4

REPORT INFORMATION
  Report Type: Spontaneous
  Country: US (occurrence: None)
  Receive Date: 20121101
  Receipt Date: 20121101
  Transmission Date: 20130627
  Serious: Yes (Hospitalization, Other)
  Sender: FDA-Public Use
  Company Number: ACO_31994_2012

PATIENT
  Age: 77 Year
  Sex: Male
  Weight: 78.5 kg

DRUGS (5)
  1. AMPYRA (DALFAMPRIDINE) TABLET, 10MG [Suspect]
     Indication: GAIT DISTURBANCE
     Route: 048
     Dates: start: 20120605, end: 20120910
  2. AMPYRA (DALFAMPRIDINE) TABLET, 10MG [Suspect]
     Indication: GAIT DISTURBANCE
     Route: 048
     Dates: start: 20120924
  3. COPAXONE (GLATIRAMER ACETATE) [Concomitant]
  4. MULTIVITAMIN (VITAMINS NOS) [Concomitant]
  5. TAMSULOSIN (TAMSULOSIN) [Concomitant]

REACTIONS (2)
  - Colorectal cancer [None]
  - Dizziness [None]
